FAERS Safety Report 23226206 (Version 1)
Quarter: 2023Q4

REPORT INFORMATION
  Report Type: Report from Study
  Country: US (occurrence: US)
  Receive Date: 20231124
  Receipt Date: 20231124
  Transmission Date: 20240110
  Serious: Yes (Other)
  Sender: FDA-Public Use
  Company Number: US-002147023-NVSC2023US245950

PATIENT
  Sex: Female

DRUGS (4)
  1. ENTRESTO [Suspect]
     Active Substance: SACUBITRIL\VALSARTAN
     Indication: Cardiac failure
     Dosage: UNK
     Route: 048
     Dates: start: 201904, end: 2020
  2. ENTRESTO [Suspect]
     Active Substance: SACUBITRIL\VALSARTAN
     Dosage: SACUBITRIL 24 MG/VALSARTAN 26 MG, BID
     Route: 048
     Dates: start: 202303
  3. ENTRESTO [Suspect]
     Active Substance: SACUBITRIL\VALSARTAN
     Dosage: 0.5 DOSAGE FORM
     Route: 048
  4. ENTRESTO [Suspect]
     Active Substance: SACUBITRIL\VALSARTAN
     Dosage: 1 DOSAGE FORM
     Route: 048

REACTIONS (14)
  - Cardiac dysfunction [Unknown]
  - Feeling abnormal [Unknown]
  - Asthenia [Unknown]
  - Dyspnoea [Unknown]
  - Gait disturbance [Unknown]
  - Paraesthesia [Unknown]
  - Hypoaesthesia [Unknown]
  - Ejection fraction decreased [Unknown]
  - Stress cardiomyopathy [Unknown]
  - Weight increased [Unknown]
  - Weight decreased [Unknown]
  - Pharyngitis streptococcal [Unknown]
  - Tonsillar hypertrophy [Unknown]
  - Wrong technique in product usage process [Unknown]

NARRATIVE: CASE EVENT DATE: 20220101
